FAERS Safety Report 6337524-6 (Version None)
Quarter: 2009Q3

REPORT INFORMATION
  Report Type: 
  Country: None (occurrence: None)
  Receive Date: 20090901
  Receipt Date: 20090901
  Transmission Date: 20100115
  Serious: Yes (Other)
  Sender: FDA-Public Use
  Company Number: None

PATIENT
  Sex: Male

DRUGS (1)
  1. AMOXICILLIN AND CLAVULANATE POTASSIUM [Suspect]
     Dosage: 1 TABLET TWICE DAILY PO
     Route: 048
     Dates: start: 20090811, end: 20090818

REACTIONS (4)
  - BEDRIDDEN [None]
  - IMMOBILE [None]
  - MYALGIA [None]
  - PAIN [None]
